FAERS Safety Report 8433653-1 (Version None)
Quarter: 2012Q2

REPORT INFORMATION
  Report Type: 
  Country: None (occurrence: None)
  Receive Date: 20120323
  Receipt Date: 20110812
  Transmission Date: 20120825
  Serious: Yes (Hospitalization)
  Sender: FDA-Public Use
  Company Number: 163-21880-11062861

PATIENT
  Age: 70 Year
  Sex: Male
  Weight: 114.76 kg

DRUGS (21)
  1. REVLIMID [Suspect]
     Indication: MULTIPLE MYELOMA
     Dosage: 10 MG, 1 IN 1 D, PO
     Route: 048
     Dates: start: 20110701
  2. REVLIMID [Suspect]
     Indication: MULTIPLE MYELOMA
     Dosage: 10 MG, 1 IN 1 D, PO
     Route: 048
     Dates: start: 20110201, end: 20110101
  3. LEVAQUIN [Concomitant]
  4. ROCEPHIN [Concomitant]
  5. AMBIEN [Concomitant]
  6. PEPCID [Concomitant]
  7. BACTRIM [Concomitant]
  8. LOVAZA [Concomitant]
  9. MS CONTIN [Concomitant]
  10. FOLIC ACID [Concomitant]
  11. LIPITOR [Concomitant]
  12. PAXIL [Concomitant]
  13. NEURONTIN [Concomitant]
  14. OXYCODONE HCL [Concomitant]
  15. METFORMIN HCL [Concomitant]
  16. COUMADIN [Concomitant]
  17. VATREXA (VALACICLOVIR HYDROCHLORIDE) [Concomitant]
  18. ZOMETA [Concomitant]
  19. MS CONTIN [Concomitant]
  20. INSULIN [Concomitant]
  21. OXYCODONE HYDROCHLORIDE [Concomitant]

REACTIONS (3)
  - NORMOCHROMIC NORMOCYTIC ANAEMIA [None]
  - THROMBOCYTOPENIA [None]
  - PNEUMONIA [None]
